FAERS Safety Report 20135675 (Version 2)
Quarter: 2021Q4

REPORT INFORMATION
  Report Type: Spontaneous
  Country: US (occurrence: US)
  Receive Date: 20211201
  Receipt Date: 20211209
  Transmission Date: 20220303
  Serious: No
  Sender: FDA-Public Use
  Company Number: US-PFIZER INC-202101212337

PATIENT

DRUGS (2)
  1. IBRANCE [Suspect]
     Active Substance: PALBOCICLIB
     Dosage: 125MG
  2. IBRANCE [Suspect]
     Active Substance: PALBOCICLIB
     Dosage: 100MG

REACTIONS (1)
  - Neutrophil count decreased [Unknown]
